FAERS Safety Report 16460990 (Version 1)
Quarter: 2019Q2

REPORT INFORMATION
  Report Type: Report from Study
  Country: GT (occurrence: GT)
  Receive Date: 20190620
  Receipt Date: 20190620
  Transmission Date: 20190711
  Serious: Yes (Other)
  Sender: FDA-Public Use
  Company Number: PHHY2019GT139819

PATIENT
  Age: 72 Year
  Sex: Male

DRUGS (2)
  1. EXFORGE HCT [Suspect]
     Active Substance: AMLODIPINE BESYLATE\HYDROCHLOROTHIAZIDE\VALSARTAN
     Dosage: (AMLODIPINE 5 MG, HYDROCHLOROTHIAZIDE 12. 5 MG, VALSARTAN 160 MG)
     Route: 065
  2. EXFORGE HCT [Suspect]
     Active Substance: AMLODIPINE BESYLATE\HYDROCHLOROTHIAZIDE\VALSARTAN
     Indication: PRODUCT USED FOR UNKNOWN INDICATION
     Dosage: (AMLODIPINE 10MG, HYDROCHLOROTHIAZIDE 25MG, VALSARTAN 320MG)
     Route: 065

REACTIONS (2)
  - Speech disorder [Unknown]
  - Cerebrovascular accident [Unknown]
